FAERS Safety Report 11864888 (Version 1)
Quarter: 2015Q4

REPORT INFORMATION
  Report Type: Report from Study
  Country: US (occurrence: US)
  Receive Date: 20151223
  Receipt Date: 20151223
  Transmission Date: 20160305
  Serious: Yes (Hospitalization, Other)
  Sender: FDA-Public Use
  Company Number: US-BAXTER-2015BAX068622

PATIENT
  Age: 14 Year
  Sex: Female
  Weight: 59 kg

DRUGS (22)
  1. IFOSFAMIDE FOR INJECTION [Suspect]
     Active Substance: IFOSFAMIDE
     Dosage: COURSE A: CYCLES 1, 3 AND 5 (CYCLE= 21 DAYS) OVER 60 MINUTES ON DAY 1-5
     Route: 042
     Dates: start: 20141122, end: 201412
  2. DEXAMETHASONE. [Suspect]
     Active Substance: DEXAMETHASONE
     Indication: ANAPLASTIC LARGE CELL LYMPHOMA T- AND NULL-CELL TYPES
     Dosage: PROPHASE (CYCLE = 5 DAYS) QD (ONCE DAILY) ON DAYS 1-2, AND BID (TWICE DAILY) ON DAYS 3-5
     Route: 048
     Dates: start: 20141002
  3. HYDROCORTISONE. [Suspect]
     Active Substance: HYDROCORTISONE
     Indication: ANAPLASTIC LARGE CELL LYMPHOMA T- AND NULL-CELL TYPES
     Dosage: 7.5-12MG, PROPHASE (CYCLE 5 DAYS), ON DAY 1; AGE BASED DOSING
     Route: 037
     Dates: start: 20141002
  4. DEXAMETHASONE. [Suspect]
     Active Substance: DEXAMETHASONE
     Dosage: OVER 3 HOURS ON DAY 1
     Route: 048
     Dates: start: 20141217, end: 20141222
  5. HYDROCORTISONE. [Suspect]
     Active Substance: HYDROCORTISONE
     Dosage: 7.5-12MG, PROPHASE (CYCLE 5 DAYS), ON DAY 1; AGE BASED DOSING
     Route: 037
     Dates: start: 20141002, end: 201412
  6. CRIZOTINIB [Suspect]
     Active Substance: CRIZOTINIB
     Dosage: COURSE B: CYCLES 2, 4 AND 6 (CYCLE= 21 DAYS), ON DAYS 1-21
     Route: 048
     Dates: start: 20141217, end: 20141222
  7. DOXORUBICIN HCL [Suspect]
     Active Substance: DOXORUBICIN HYDROCHLORIDE
     Indication: ANAPLASTIC LARGE CELL LYMPHOMA T- AND NULL-CELL TYPES
     Dosage: COURSE B: CYCLES 2, 4 AND 6 (CYCLE= 21 DAYS) OVER 1-15 MINUTES ON DAYS 4 AND 5
     Route: 042
     Dates: start: 201410, end: 20141221
  8. ONDANSETRON [Suspect]
     Active Substance: ONDANSETRON
     Indication: PRODUCT USED FOR UNKNOWN INDICATION
     Route: 065
  9. CYTARABINE. [Suspect]
     Active Substance: CYTARABINE
     Indication: ANAPLASTIC LARGE CELL LYMPHOMA T- AND NULL-CELL TYPES
     Dosage: 15-24 MG, PROPHASE (CYCLE 5 DAYS), ON DAY 1; AGE BASED DOSING
     Route: 037
     Dates: start: 20141002
  10. VP-16 [Suspect]
     Active Substance: ETOPOSIDE
     Dosage: COURSE A: OVER 2 HOURS ON DAYS 4 AND 5
     Route: 042
     Dates: start: 20141122, end: 201412
  11. METHOTREXATE [Suspect]
     Active Substance: METHOTREXATE
     Dosage: COURSE A CYCLES 1, 3 AND 5 (CYCLE= 21 DAYS): OVER 3 HOURS ON DAY 1
     Route: 042
  12. CYCLOPHOSPHAMIDE FOR INJECTION, USP [Suspect]
     Active Substance: CYCLOPHOSPHAMIDE
     Dosage: COURSE B (CYCLE 2, 4 AND 6, 21 DAYS CYCLE), OVER 15-30 MINUTES ON DAYS 1 AND 2
     Route: 042
     Dates: end: 201412
  13. METHOTREXATE [Suspect]
     Active Substance: METHOTREXATE
     Indication: ANAPLASTIC LARGE CELL LYMPHOMA T- AND NULL-CELL TYPES
     Dosage: 7.5-12MG, PROPHASE (CYCLE 5 DAYS), ON DAY 1; AGE BASED DOSING
     Route: 037
     Dates: start: 20141002
  14. CYCLOPHOSPHAMIDE FOR INJECTION, USP [Suspect]
     Active Substance: CYCLOPHOSPHAMIDE
     Indication: ANAPLASTIC LARGE CELL LYMPHOMA T- AND NULL-CELL TYPES
     Dosage: PROPHASE (CYCLE = 5 DAYS), OVER 15-30 MINUTES ON DAYS 1 AND 2
     Route: 042
     Dates: start: 20141002
  15. CYCLOPHOSPHAMIDE FOR INJECTION, USP [Suspect]
     Active Substance: CYCLOPHOSPHAMIDE
     Dosage: COURSE B (CYCLE 2, 4 AND 6, 21 DAYS CYCLE), OVER 15-30 MINUTES ON DAYS 1 AND 2
     Route: 042
     Dates: start: 20141217, end: 20141221
  16. CRIZOTINIB [Suspect]
     Active Substance: CRIZOTINIB
     Indication: ANAPLASTIC LARGE CELL LYMPHOMA T- AND NULL-CELL TYPES
     Dosage: COURSE A: CYCLES 1, 3 AND 5 (CYCLE= 21 DAYS), ON DAYS 1-21
     Route: 048
  17. CRIZOTINIB [Suspect]
     Active Substance: CRIZOTINIB
     Dosage: REDUCED DOSE
     Route: 048
  18. METHOTREXATE [Suspect]
     Active Substance: METHOTREXATE
     Dosage: COURSE B: CYCLES 2, 4 AND 6 (CYCLE= 21 DAYS) OVER 3 HOURS ON DAY 1
     Route: 042
     Dates: end: 20141218
  19. CYTARABINE. [Suspect]
     Active Substance: CYTARABINE
     Dosage: COURSE A: CYCLES 1, 3 AND 5 (CYCLE= 21 DAYS), OVER 1-30 MINUTES Q12 HOURS ON DAYS 4 AND 5 (TOTAL 4 D
     Route: 037
     Dates: start: 20141122, end: 201412
  20. VP-16 [Suspect]
     Active Substance: ETOPOSIDE
     Indication: ANAPLASTIC LARGE CELL LYMPHOMA T- AND NULL-CELL TYPES
     Dosage: COURSE A, CYCLES 1, 3 AND 5 (CYCLE= 21 DAYS): OVER 2 HOURS ON DAYS 4 AND 5
     Route: 042
     Dates: start: 201410
  21. DEXAMETHASONE. [Suspect]
     Active Substance: DEXAMETHASONE
     Dosage: COURSE A (CYCLE OF 21 DAYS) ON DAYS 1-5
     Route: 048
  22. IFOSFAMIDE FOR INJECTION [Suspect]
     Active Substance: IFOSFAMIDE
     Indication: ANAPLASTIC LARGE CELL LYMPHOMA T- AND NULL-CELL TYPES
     Dosage: COURSE A: CYCLES 1, 3 AND 5 (CYCLE= 21 DAYS) OVER 60 MINUTES ON DAY 1-5
     Route: 042
     Dates: start: 201410

REACTIONS (2)
  - Electrocardiogram QT prolonged [Recovered/Resolved]
  - Septic shock [Unknown]

NARRATIVE: CASE EVENT DATE: 20141221
